FAERS Safety Report 5209252-1 (Version None)
Quarter: 2007Q1

REPORT INFORMATION
  Report Type: 
  Country: None (occurrence: None)
  Receive Date: 20070116
  Receipt Date: 20070105
  Transmission Date: 20070707
  Serious: Yes (Death, Other)
  Sender: FDA-Public Use
  Company Number: GB-JNJFOC-20061201914

PATIENT
  Age: 81 Year
  Sex: Female

DRUGS (7)
  1. RISPERDAL [Suspect]
     Indication: DELUSION
     Route: 048
  2. ASPIRIN [Concomitant]
     Indication: DEMENTIA
     Route: 048
  3. BENDROFLUAZIDE [Concomitant]
     Indication: HYPERTENSION
     Route: 048
  4. CITALOPRAM HYDROBROMIDE [Concomitant]
     Indication: DEPRESSION
     Route: 048
  5. DONEPEZIL HCL [Concomitant]
     Indication: DEMENTIA
  6. HYDREA [Concomitant]
     Indication: POLYCYTHAEMIA
  7. TEMAZEPAM [Concomitant]
     Indication: INSOMNIA
     Route: 048

REACTIONS (2)
  - NEUROLEPTIC MALIGNANT SYNDROME [None]
  - PULMONARY EMBOLISM [None]
